FAERS Safety Report 25156961 (Version 1)
Quarter: 2025Q2

REPORT INFORMATION
  Report Type: Spontaneous
  Country: AT (occurrence: AT)
  Receive Date: 20250403
  Receipt Date: 20250403
  Transmission Date: 20250717
  Serious: Yes (Other)
  Sender: UCB
  Company Number: AT-UCBSA-2025019258

PATIENT
  Age: 9 Year

DRUGS (1)
  1. FINTEPLA [Suspect]
     Active Substance: FENFLURAMINE
     Indication: Lennox-Gastaut syndrome
     Dosage: 3 MILLILITER, 2X/DAY (BID)

REACTIONS (5)
  - Seizure [Unknown]
  - Gastrointestinal disorder [Unknown]
  - Fatigue [Unknown]
  - Behaviour disorder [Unknown]
  - Electroencephalogram abnormal [Unknown]
